FAERS Safety Report 5243048-X (Version None)
Quarter: 2007Q1

REPORT INFORMATION
  Report Type: 
  Country: None (occurrence: None)
  Receive Date: 20070220
  Receipt Date: 20070220
  Transmission Date: 20070707
  Serious: Yes (Hospitalization)
  Sender: FDA-Public Use
  Company Number: None

PATIENT
  Sex: Female
  Weight: 47.8 kg

DRUGS (16)
  1. METHOTREXATE [Suspect]
     Dosage: 11345 MG
     Dates: end: 20060905
  2. CYCLOPHOSPHAMIDE [Suspect]
     Dosage: 4200 MG
     Dates: end: 20060902
  3. CYTARABINE [Suspect]
     Dosage: 90MG
     Dates: end: 20060905
  4. DOXORUBICIN HYDROCHLORIDE [Suspect]
     Dosage: 84 MG
     Dates: end: 20060831
  5. G-CSF (FILGRASTIM, AMGEN) [Suspect]
     Dosage: 2250 MCG
     Dates: end: 20060913
  6. HYDROCORTISONE [Suspect]
     Dosage: 45 MG
     Dates: end: 20060905
  7. LEUCOVORIN CALCIUM [Suspect]
     Dosage: 200 MG
     Dates: end: 20060903
  8. PREDNISONE [Suspect]
     Dosage: 460 MG
     Dates: end: 20060905
  9. RITUXIMAB (MOAB C2B8 ANTI CD20, CHIMERIC) [Suspect]
     Dosage: 1050 MG
     Dates: end: 20060830
  10. VINCRISTINE SULFATE [Suspect]
     Dosage: 2 MG
     Dates: end: 20060830
  11. BACTRIM [Concomitant]
  12. GLUTAMINE [Concomitant]
  13. MIRALAX [Concomitant]
  14. ZOFRAN [Concomitant]
  15. BENADRYL [Concomitant]
  16. TYLENOL [Concomitant]

REACTIONS (2)
  - ALANINE AMINOTRANSFERASE INCREASED [None]
  - ASPARTATE AMINOTRANSFERASE INCREASED [None]
